FAERS Safety Report 18817883 (Version 1)
Quarter: 2021Q1

REPORT INFORMATION
  Report Type: Spontaneous
  Country: US (occurrence: US)
  Receive Date: 20210201
  Receipt Date: 20210201
  Transmission Date: 20210419
  Serious: No
  Sender: FDA-Public Use
  Company Number: US-PFIZER INC-2020411675

PATIENT
  Age: 73 Year
  Sex: Male

DRUGS (4)
  1. SUTENT [Suspect]
     Active Substance: SUNITINIB MALATE
     Indication: RENAL CELL CARCINOMA
     Dosage: 37.5 MG, CYCLIC (TAKE 1 CAPSULE WITH OR WITHOUT FOOD ON DAYS 1?14 OF 21 (2 WEEKS ON, ONE WEEK OFF))
     Route: 048
  2. SUTENT [Suspect]
     Active Substance: SUNITINIB MALATE
     Indication: METASTASES TO BONE
  3. SUTENT [Suspect]
     Active Substance: SUNITINIB MALATE
     Indication: CONSTIPATION
     Dosage: 37.5 MG
  4. SUTENT [Suspect]
     Active Substance: SUNITINIB MALATE
     Indication: LUNG CARCINOMA CELL TYPE UNSPECIFIED STAGE 0

REACTIONS (1)
  - Neoplasm progression [Unknown]
